FAERS Safety Report 8392187-3 (Version None)
Quarter: 2012Q1

REPORT INFORMATION
  Report Type: 
  Country: None (occurrence: None)
  Receive Date: 20120323
  Receipt Date: 20110325
  Transmission Date: 20120608
  Serious: Yes (Other)
  Sender: FDA-Public Use
  Company Number: 163-21880-11030123

PATIENT
  Age: 68 Year
  Sex: Male
  Weight: 70.31 kg

DRUGS (4)
  1. REVLIMID [Suspect]
     Indication: MULTIPLE MYELOMA
     Dosage: 25 MG, 1 IN 1 D, PO
     Route: 048
     Dates: start: 20110224, end: 20110101
  2. DILAUDID [Concomitant]
  3. NAPROSYN [Concomitant]
  4. ZOFRAN [Concomitant]

REACTIONS (1)
  - RASH [None]
